FAERS Safety Report 6064666-5 (Version None)
Quarter: 2009Q1

REPORT INFORMATION
  Report Type: 
  Country: None (occurrence: None)
  Receive Date: 20090204
  Receipt Date: 20080401
  Transmission Date: 20090719
  Serious: No
  Sender: FDA-Public Use
  Company Number: A0718635A

PATIENT
  Age: 80 Year
  Sex: Female

DRUGS (11)
  1. ARIXTRA [Suspect]
     Dosage: 5MG PER DAY
     Route: 058
     Dates: start: 20080323
  2. AMILORIDE HYDROCHLORIDE [Concomitant]
  3. ASPIRIN [Concomitant]
  4. TUMS [Concomitant]
  5. CLONIDINE HCL [Concomitant]
  6. DIGOXIN [Concomitant]
  7. DOCUSATE CALCIUM [Concomitant]
  8. VITAMIN D [Concomitant]
  9. PEPCID [Concomitant]
  10. LISINOPRIL [Concomitant]
  11. LOPRESSOR [Concomitant]

REACTIONS (3)
  - ABDOMINAL PAIN [None]
  - INJECTION SITE PAIN [None]
  - INJECTION SITE REACTION [None]
